FAERS Safety Report 18267733 (Version 1)
Quarter: 2020Q3

REPORT INFORMATION
  Report Type: Spontaneous
  Country: US (occurrence: US)
  Receive Date: 20200915
  Receipt Date: 20200915
  Transmission Date: 20201103
  Serious: No
  Sender: FDA-Public Use
  Company Number: US-MYLANLABS-2020M1077303

PATIENT
  Sex: Male

DRUGS (1)
  1. METFORMIN HYDROCHLORIDE TABLETS, USP [Suspect]
     Active Substance: METFORMIN HYDROCHLORIDE
     Indication: PRODUCT USED FOR UNKNOWN INDICATION
     Dosage: 1 TABLET/TWICE A DAY
     Route: 048
     Dates: start: 202008

REACTIONS (5)
  - Fatigue [Not Recovered/Not Resolved]
  - Fear [Not Recovered/Not Resolved]
  - Feeling abnormal [Not Recovered/Not Resolved]
  - Product odour abnormal [Unknown]
  - Malaise [Not Recovered/Not Resolved]
